FAERS Safety Report 26063671 (Version 1)
Quarter: 2025Q4

REPORT INFORMATION
  Report Type: Spontaneous
  Country: US (occurrence: US)
  Receive Date: 20251119
  Receipt Date: 20251119
  Transmission Date: 20260117
  Serious: Yes (Death, Hospitalization, Other)
  Sender: DAIICHI
  Company Number: US-DAIICHI SANKYO, INC.-DS-2025-172536-US

PATIENT
  Sex: Female

DRUGS (1)
  1. DATROWAY [Suspect]
     Active Substance: DATOPOTAMAB DERUXTECAN-DLNK
     Indication: Non-small cell lung cancer
     Dosage: 100 MG (2 CYCLES)
     Route: 042

REACTIONS (3)
  - Oncologic complication [Fatal]
  - Disease progression [Unknown]
  - Pneumonia aspiration [Unknown]
